FAERS Safety Report 8952936 (Version 2)
Quarter: 2013Q1

REPORT INFORMATION
  Report Type: Spontaneous
  Country: JP (occurrence: JP)
  Receive Date: 20121203
  Receipt Date: 20130311
  Transmission Date: 20140127
  Serious: Yes (Life-Threatening, Hospitalization, Other)
  Sender: FDA-Public Use
  Company Number: JP-ELI_LILLY_AND_COMPANY-JP201211002622

PATIENT
  Age: 63 Year
  Sex: Male
  Weight: 71 kg

DRUGS (7)
  1. ALIMTA [Suspect]
     Indication: LUNG ADENOCARCINOMA STAGE IV
     Dosage: 905 MG, UNK
     Route: 042
     Dates: start: 20100203, end: 20100302
  2. AVASTIN [Concomitant]
     Indication: LUNG ADENOCARCINOMA STAGE IV
     Dosage: 1040 MG, UNK
     Route: 042
     Dates: start: 20100203, end: 20100302
  3. CISPLATIN [Concomitant]
     Indication: LUNG ADENOCARCINOMA STAGE IV
     Dosage: 135 MG, UNK
     Route: 042
     Dates: start: 20100203, end: 20100302
  4. METHYCOBAL [Concomitant]
     Indication: PROPHYLAXIS
     Dosage: 1000 MG, UNK
     Route: 030
     Dates: start: 20100128
  5. FOLIAMIN [Concomitant]
     Indication: PROPHYLAXIS
     Dosage: 0.5 MG, UNK
     Route: 048
     Dates: start: 20100128
  6. BLOPRESS [Concomitant]
     Indication: HYPERTENSION
     Dosage: 8 MG, UNK
     Route: 048
  7. AMLODIPIN                          /00972401/ [Concomitant]
     Indication: HYPERTENSION
     Dosage: 2.5 MG, UNK
     Route: 048

REACTIONS (5)
  - Pulmonary embolism [Recovered/Resolved]
  - Lymphangiosis carcinomatosa [Unknown]
  - Deep vein thrombosis [Not Recovered/Not Resolved]
  - Pneumonia [Unknown]
  - Off label use [Recovered/Resolved]
